FAERS Safety Report 6785446-9 (Version None)
Quarter: 2010Q2

REPORT INFORMATION
  Report Type: 
  Country: None (occurrence: None)
  Receive Date: 20100623
  Receipt Date: 20100615
  Transmission Date: 20101027
  Serious: No
  Sender: FDA-Public Use
  Company Number: US-BIOGENIDEC-2010BI020415

PATIENT
  Sex: Female

DRUGS (2)
  1. TYSABRI [Suspect]
     Indication: MULTIPLE SCLEROSIS
     Route: 042
     Dates: start: 20070209, end: 20080515
  2. TYSABRI [Suspect]
     Route: 042
     Dates: start: 20100226

REACTIONS (3)
  - MUSCULAR WEAKNESS [None]
  - POOR VENOUS ACCESS [None]
  - TEMPERATURE INTOLERANCE [None]
